FAERS Safety Report 7361305-8 (Version None)
Quarter: 2011Q1

REPORT INFORMATION
  Report Type: 
  Country: None (occurrence: None)
  Receive Date: 20110318
  Receipt Date: 20110312
  Transmission Date: 20110831
  Serious: Yes (Hospitalization, Other)
  Sender: FDA-Public Use
  Company Number: A0917450A

PATIENT
  Sex: Male
  Weight: 33 kg

DRUGS (2)
  1. VALPROIC ACID [Concomitant]
     Indication: EPILEPSY
     Dosage: 1500MG PER DAY
     Route: 048
     Dates: start: 20100201
  2. LAMICTAL [Suspect]
     Indication: EPILEPSY
     Dosage: 200MG PER DAY
     Route: 048
     Dates: start: 20110201, end: 20110312

REACTIONS (7)
  - PANCREATITIS [None]
  - GASTROINTESTINAL DISORDER [None]
  - GASTROINTESTINAL MOTILITY DISORDER [None]
  - EPILEPSY [None]
  - VOMITING [None]
  - DECREASED APPETITE [None]
  - NAUSEA [None]
